FAERS Safety Report 24668616 (Version 1)
Quarter: 2024Q4

REPORT INFORMATION
  Report Type: Report from Study
  Country: US (occurrence: US)
  Receive Date: 20241127
  Receipt Date: 20241127
  Transmission Date: 20250115
  Serious: No
  Sender: ACADIA PHARMACEUTICALS
  Company Number: US-ACADIA PHARMACEUTICALS INC.-ACA-2024-PIM-007490

PATIENT
  Sex: Male

DRUGS (17)
  1. NUPLAZID [Suspect]
     Active Substance: PIMAVANSERIN TARTRATE
     Indication: Parkinson^s disease
     Dosage: 34 MILLIGRAM, QD
     Route: 048
     Dates: start: 20241107
  2. CENTRUM ACTIVE [Concomitant]
  3. WARFARIN [Concomitant]
     Active Substance: WARFARIN
  4. ATORVASTATIN [Concomitant]
     Active Substance: ATORVASTATIN
  5. BRILINTA [Concomitant]
     Active Substance: TICAGRELOR
  6. MESTINON [Concomitant]
     Active Substance: PYRIDOSTIGMINE BROMIDE
  7. CARBIDOPA [Concomitant]
     Active Substance: CARBIDOPA
  8. JARDIANCE [Concomitant]
     Active Substance: EMPAGLIFLOZIN
  9. VITAMIN C [Concomitant]
     Active Substance: ASCORBIC ACID
  10. DULOXETINE [Concomitant]
     Active Substance: DULOXETINE
  11. AMOXICILLIN [Concomitant]
     Active Substance: AMOXICILLIN
  12. TYLENOL [Concomitant]
     Active Substance: ACETAMINOPHEN
  13. MIDODRINE [Concomitant]
     Active Substance: MIDODRINE
  14. DETROL LA [Concomitant]
     Active Substance: TOLTERODINE TARTRATE
  15. GLIPIZIDE [Concomitant]
     Active Substance: GLIPIZIDE
  16. GOCOVRI [Concomitant]
     Active Substance: AMANTADINE
  17. VITAMIN D3 [Concomitant]
     Active Substance: CHOLECALCIFEROL

REACTIONS (1)
  - Fatigue [Recovered/Resolved]
